FAERS Safety Report 23728518 (Version 1)
Quarter: 2024Q2

REPORT INFORMATION
  Report Type: Spontaneous
  Country: US (occurrence: US)
  Receive Date: 20240410
  Receipt Date: 20240410
  Transmission Date: 20240716
  Serious: Yes (Other)
  Sender: FDA-Public Use
  Company Number: US-FreseniusKabi-FK202405742

PATIENT
  Age: 78 Year
  Sex: Female
  Weight: 66.68 kg

DRUGS (3)
  1. CARBOPLATIN [Suspect]
     Active Substance: CARBOPLATIN
     Indication: Lung neoplasm malignant
     Dosage: DOSAGE (DOSE AND FREQUENCY): Q 3 WEEKS?EXPIRY: ASKED BUT UNKNOWN?ROUTE: IV VIA PORT?DOSE 1?ONGOING
     Route: 042
     Dates: start: 20240304
  2. CARBOPLATIN [Suspect]
     Active Substance: CARBOPLATIN
     Dosage: DOSAGE (DOSE AND FREQUENCY): Q 3 WEEKS?EXPIRY: ASKED BUT UNKNOWN?ROUTE: IV VIA PORT?DOSE 2?ONGOING
     Route: 042
     Dates: start: 20240325
  3. ALIMTA [Suspect]
     Active Substance: PEMETREXED DISODIUM
     Indication: Lung neoplasm malignant
     Dosage: ROUTE: NOT ASKED?DOSAGE (DOSE AND FREQUENCY): NOT ASKED?EXPIRY: ASKED BUT UNKNOWN?ONGOING
     Dates: start: 20240304

REACTIONS (3)
  - Condition aggravated [Not Recovered/Not Resolved]
  - Actinic keratosis [Not Recovered/Not Resolved]
  - Cellulitis [Not Recovered/Not Resolved]
